FAERS Safety Report 21591866 (Version 1)
Quarter: 2022Q4

REPORT INFORMATION
  Report Type: Spontaneous
  Country: FR (occurrence: FR)
  Receive Date: 20221114
  Receipt Date: 20221114
  Transmission Date: 20230112
  Serious: Yes (Other)
  Sender: FDA-Public Use
  Company Number: None

PATIENT
  Age: 55 Year
  Sex: Female

DRUGS (1)
  1. OPDIVO [Suspect]
     Active Substance: NIVOLUMAB
     Indication: Choroid melanoma
     Route: 042
     Dates: start: 202112

REACTIONS (2)
  - Vitiligo [Not Recovered/Not Resolved]
  - Demyelinating polyneuropathy [Not Recovered/Not Resolved]

NARRATIVE: CASE EVENT DATE: 20220301
